FAERS Safety Report 8482220-2 (Version None)
Quarter: 2012Q3

REPORT INFORMATION
  Report Type: 
  Country: None (occurrence: None)
  Receive Date: 20120702
  Receipt Date: 20120626
  Transmission Date: 20120928
  Serious: Yes (Life-Threatening, Hospitalization, Other)
  Sender: FDA-Public Use
  Company Number: US-ASTRAZENECA-2009UW01866

PATIENT
  Age: 53 Year
  Sex: Female
  Weight: 77.1 kg

DRUGS (9)
  1. SEROQUEL [Suspect]
     Route: 048
  2. PAIN MEDS [Concomitant]
  3. SEROQUEL [Suspect]
     Route: 048
     Dates: start: 20080609, end: 20090106
  4. DIABETES MEDS [Concomitant]
  5. SEROQUEL [Suspect]
     Indication: BIPOLAR DISORDER
     Route: 048
  6. BLOOD PRESSURE MEDS [Concomitant]
  7. CHOLESTEROL MEDS [Concomitant]
  8. PROZAC [Concomitant]
  9. ATIVAN [Concomitant]

REACTIONS (19)
  - SUICIDE ATTEMPT [None]
  - DRUG DOSE OMISSION [None]
  - BLOOD CHOLESTEROL INCREASED [None]
  - CEREBROVASCULAR ACCIDENT [None]
  - TRANSIENT ISCHAEMIC ATTACK [None]
  - MUSCLE SPASMS [None]
  - SUICIDAL IDEATION [None]
  - MOOD SWINGS [None]
  - DIABETES MELLITUS [None]
  - ADVERSE EVENT [None]
  - MALAISE [None]
  - AGITATION [None]
  - TACHYPHRENIA [None]
  - DEPRESSION [None]
  - INSOMNIA [None]
  - WITHDRAWAL SYNDROME [None]
  - INTENTIONAL DRUG MISUSE [None]
  - PANIC ATTACK [None]
  - FEELING ABNORMAL [None]
